FAERS Safety Report 14305575 (Version 1)
Quarter: 2017Q4

REPORT INFORMATION
  Report Type: Spontaneous
  Country: GB (occurrence: GB)
  Receive Date: 20171219
  Receipt Date: 20171219
  Transmission Date: 20180321
  Serious: Yes (Death)
  Sender: FDA-Public Use
  Company Number: GB-OTSUKA-DJ20082304

PATIENT
  Age: 86 Year
  Sex: Male
  Weight: 78.8 kg

DRUGS (11)
  1. ABILIFY [Suspect]
     Active Substance: ARIPIPRAZOLE
     Indication: DEMENTIA
     Dosage: 1 MG, UNK
     Route: 048
     Dates: start: 20080215
  2. ABILIFY [Suspect]
     Active Substance: ARIPIPRAZOLE
     Route: 048
     Dates: end: 20080407
  3. MIRTAZAPINE. [Concomitant]
     Active Substance: MIRTAZAPINE
     Indication: DEPRESSION
     Dosage: 30 MG, QD
     Route: 048
     Dates: start: 200711, end: 20080401
  4. ABILIFY [Suspect]
     Active Substance: ARIPIPRAZOLE
     Route: 048
  5. QUETIAPINE. [Concomitant]
     Active Substance: QUETIAPINE
     Indication: AGGRESSION
  6. CHLORPROMAZINE. [Concomitant]
     Active Substance: CHLORPROMAZINE
     Indication: DELUSION
     Route: 048
  7. MESALAZINE [Concomitant]
     Active Substance: MESALAMINE
     Indication: COLITIS ULCERATIVE
     Route: 065
     Dates: end: 20080402
  8. DOXYCYCLINE HYDROCHLORIDE [Concomitant]
     Active Substance: DOXYCYCLINE HYDROCHLORIDE
     Indication: SKIN DISORDER
     Dosage: 50 MG, QD
     Route: 048
     Dates: end: 20080401
  9. HYDROXOCOBALAMIN [Concomitant]
     Active Substance: HYDROXOCOBALAMIN
     Indication: VITAMIN B12 DEFICIENCY
     Route: 065
     Dates: start: 20080217
  10. CHLORPROMAZINE. [Concomitant]
     Active Substance: CHLORPROMAZINE
     Indication: AGGRESSION
  11. QUETIAPINE. [Concomitant]
     Active Substance: QUETIAPINE
     Indication: DELUSION
     Dosage: 1 DF= 100 TO 250 MG
     Route: 048
     Dates: start: 20080103, end: 20080130

REACTIONS (4)
  - Arteriosclerosis coronary artery [Fatal]
  - Decreased appetite [Unknown]
  - Sedation [Unknown]
  - Pyrexia [Unknown]

NARRATIVE: CASE EVENT DATE: 20080324
